FAERS Safety Report 6710131-9 (Version None)
Quarter: 2010Q2

REPORT INFORMATION
  Report Type: 
  Country: None (occurrence: None)
  Receive Date: 20100504
  Receipt Date: 20100428
  Transmission Date: 20101027
  Serious: Yes (Hospitalization)
  Sender: FDA-Public Use
  Company Number: HK-ROCHE-700038

PATIENT
  Sex: Male

DRUGS (3)
  1. CAPECITABINE [Suspect]
     Dosage: LAST DOSE PRIOR TO SAE: 26 APR 2010
     Route: 048
     Dates: start: 20100415, end: 20100427
  2. CISPLATIN [Suspect]
     Dosage: FORM: INFUSION; LAST DOSE PRIOR TO SAE: 18 APR 2010
     Route: 042
     Dates: start: 20100415
  3. FLUOROURACIL [Suspect]
     Dosage: FORM: IV INFUSION
     Route: 042

REACTIONS (1)
  - RENAL IMPAIRMENT [None]
